FAERS Safety Report 16060150 (Version 1)
Quarter: 2019Q1

REPORT INFORMATION
  Report Type: Spontaneous
  Country: US (occurrence: US)
  Receive Date: 20190312
  Receipt Date: 20190312
  Transmission Date: 20190418
  Serious: Yes (Hospitalization)
  Sender: FDA-Public Use
  Company Number: US-DSJP-DSU-2017-148679

PATIENT

DRUGS (2)
  1. BENICAR HCT [Suspect]
     Active Substance: HYDROCHLOROTHIAZIDE\OLMESARTAN MEDOXOMIL
     Dosage: 40-12.5MG, QD
     Dates: start: 20100706, end: 20170516
  2. BENICAR HCT [Suspect]
     Active Substance: HYDROCHLOROTHIAZIDE\OLMESARTAN MEDOXOMIL
     Indication: PRODUCT USED FOR UNKNOWN INDICATION
     Dosage: 20-12.5MG, UNK
     Dates: start: 20100706, end: 20170516

REACTIONS (6)
  - Sprue-like enteropathy [Recovered/Resolved]
  - Erosive duodenitis [Unknown]
  - Gastrooesophageal reflux disease [Unknown]
  - Gastrointestinal haemorrhage [Unknown]
  - Constipation [Unknown]
  - Hiatus hernia [Unknown]

NARRATIVE: CASE EVENT DATE: 20130117
